FAERS Safety Report 9548686 (Version 1)
Quarter: 2013Q3

REPORT INFORMATION
  Report Type: Spontaneous
  Country: US (occurrence: None)
  Receive Date: 20130919
  Receipt Date: 20130919
  Transmission Date: 20140515
  Serious: Yes (Other)
  Sender: FDA-Public Use
  Company Number: ACO_38396_2013

PATIENT
  Sex: 0

DRUGS (1)
  1. DALFAMPRIDINE [Suspect]
     Indication: BALANCE DISORDER
     Route: 048

REACTIONS (4)
  - Suicidal ideation [None]
  - Urinary tract infection [None]
  - Headache [None]
  - Balance disorder [None]
